FAERS Safety Report 10450132 (Version 3)
Quarter: 2014Q4

REPORT INFORMATION
  Report Type: Spontaneous
  Country: FR (occurrence: FR)
  Receive Date: 20140912
  Receipt Date: 20141229
  Transmission Date: 20150528
  Serious: Yes (Hospitalization, Other)
  Sender: FDA-Public Use
  Company Number: FR-JNJFOC-20140902259

PATIENT
  Age: 0 Day
  Sex: Male
  Weight: 2.12 kg

DRUGS (5)
  1. PREZISTA [Suspect]
     Active Substance: DARUNAVIR ETHANOLATE
     Indication: HIV INFECTION
     Route: 064
     Dates: start: 20131107, end: 20140722
  2. TRUVADA [Suspect]
     Active Substance: EMTRICITABINE\TENOFOVIR DISOPROXIL FUMARATE
     Indication: HIV INFECTION
     Route: 064
     Dates: start: 20131107, end: 20140722
  3. FOLIC ACID. [Suspect]
     Active Substance: FOLIC ACID
     Indication: HIV INFECTION
     Route: 064
     Dates: start: 20131107, end: 20140722
  4. NORVIR [Suspect]
     Active Substance: RITONAVIR
     Indication: HIV INFECTION
     Route: 064
     Dates: start: 20131107, end: 20140722
  5. BACTRIM [Suspect]
     Active Substance: SULFAMETHOXAZOLE\TRIMETHOPRIM
     Indication: URINARY TRACT INFECTION
     Route: 064
     Dates: start: 20140719, end: 20140722

REACTIONS (4)
  - Foetal growth restriction [Recovered/Resolved]
  - Foetal heart rate disorder [Unknown]
  - Foetal exposure during pregnancy [Recovered/Resolved]
  - Pancytopenia [Recovered/Resolved]

NARRATIVE: CASE EVENT DATE: 20140722
